FAERS Safety Report 5189849-8 (Version None)
Quarter: 2006Q4

REPORT INFORMATION
  Report Type: 
  Country: None (occurrence: None)
  Receive Date: 20061218
  Receipt Date: 20061208
  Transmission Date: 20070319
  Serious: Yes (Other)
  Sender: FDA-Public Use
  Company Number: 233421

PATIENT
  Age: 85 Year
  Sex: Female
  Weight: 60.3 kg

DRUGS (2)
  1. LUCENTIS [Suspect]
     Indication: MACULAR DEGENERATION
     Dates: start: 20061130
  2. ULTRAM [Concomitant]

REACTIONS (8)
  - CONDITION AGGRAVATED [None]
  - CONSTIPATION [None]
  - DIZZINESS [None]
  - DYSPHAGIA [None]
  - FAECES HARD [None]
  - FATIGUE [None]
  - MUSCULOSKELETAL DISCOMFORT [None]
  - VERTIGO [None]
